FAERS Safety Report 8525385-6 (Version None)
Quarter: 2012Q3

REPORT INFORMATION
  Report Type: 
  Country: None (occurrence: None)
  Receive Date: 20120710
  Receipt Date: 20120704
  Transmission Date: 20120928
  Serious: Yes (Other)
  Sender: FDA-Public Use
  Company Number: 2012032792

PATIENT
  Age: 85 Year
  Sex: Male

DRUGS (3)
  1. PRIVIGEN [Suspect]
     Indication: MYASTHENIA GRAVIS
     Dosage: SEE IMAGE
     Route: 042
     Dates: start: 20120514, end: 20120518
  2. PRIVIGEN [Suspect]
     Indication: MYASTHENIA GRAVIS
     Dosage: SEE IMAGE
     Route: 042
     Dates: start: 20120514, end: 20120518
  3. PRIVIGEN [Suspect]
     Indication: MYASTHENIA GRAVIS
     Dosage: SEE IMAGE
     Route: 042
     Dates: start: 20120514, end: 20120518

REACTIONS (2)
  - HAEMOLYTIC ANAEMIA [None]
  - OFF LABEL USE [None]
